FAERS Safety Report 7936131-9 (Version None)
Quarter: 2011Q4

REPORT INFORMATION
  Report Type: 
  Country: None (occurrence: None)
  Receive Date: 20111123
  Receipt Date: 20111117
  Transmission Date: 20120403
  Serious: Yes (Hospitalization)
  Sender: FDA-Public Use
  Company Number: JP-BRISTOL-MYERS SQUIBB COMPANY-16240764

PATIENT
  Age: 77 Year
  Sex: Male

DRUGS (5)
  1. AVAPRO [Suspect]
     Indication: HYPERTENSION
     Route: 048
     Dates: start: 20110623
  2. NOVORAPID [Concomitant]
     Dosage: 1DF= NOVORAPID 30 MIX PENFILL (INSULIN ASPART (GENETICAL RECOMBINATION)
  3. INDAPAMIDE [Concomitant]
  4. METHYCOBAL [Concomitant]
  5. LAXOBERON [Concomitant]

REACTIONS (1)
  - GASTRIC CANCER [None]
